FAERS Safety Report 8381724-0 (Version None)
Quarter: 2012Q2

REPORT INFORMATION
  Report Type: 
  Country: None (occurrence: None)
  Receive Date: 20120524
  Receipt Date: 20120517
  Transmission Date: 20120825
  Serious: Yes (Hospitalization)
  Sender: FDA-Public Use
  Company Number: US-BIOGENIDEC-2012BI015953

PATIENT
  Age: 61 Year
  Sex: Female

DRUGS (4)
  1. AVONEX [Suspect]
     Route: 030
     Dates: start: 20050101
  2. AVONEX [Suspect]
     Indication: MULTIPLE SCLEROSIS
     Route: 030
     Dates: start: 19970101
  3. AVONEX [Suspect]
     Route: 030
     Dates: start: 20050101
  4. AVONEX [Suspect]
     Route: 030
     Dates: start: 20050101

REACTIONS (2)
  - BREAST CANCER [None]
  - BREAST RECONSTRUCTION [None]
